FAERS Safety Report 7403430-9 (Version None)
Quarter: 2011Q2

REPORT INFORMATION
  Report Type: 
  Country: None (occurrence: None)
  Receive Date: 20110408
  Receipt Date: 20110323
  Transmission Date: 20111010
  Serious: Yes (Hospitalization)
  Sender: FDA-Public Use
  Company Number: A0920337A

PATIENT
  Sex: Female

DRUGS (12)
  1. LASIX [Concomitant]
  2. LIPITOR [Concomitant]
  3. PERCOCET [Concomitant]
  4. QUINAPRIL [Concomitant]
  5. XANAX [Concomitant]
  6. ISOSORBIDE DINITRATE [Concomitant]
  7. PREVACID [Concomitant]
  8. AVANDIA [Suspect]
     Indication: DIABETES MELLITUS
     Dosage: 4MG PER DAY
     Route: 048
     Dates: start: 20030416, end: 20100225
  9. NORVASC [Concomitant]
  10. GLUCOTROL XL [Concomitant]
  11. ASPIRIN [Concomitant]
  12. ATENOLOL [Concomitant]

REACTIONS (1)
  - THALAMIC INFARCTION [None]
